APPROVED DRUG PRODUCT: METHYCLOTHIAZIDE
Active Ingredient: METHYCLOTHIAZIDE
Strength: 5MG
Dosage Form/Route: TABLET;ORAL
Application: A089136 | Product #001
Applicant: PAR PHARMACEUTICAL INC
Approved: Feb 12, 1986 | RLD: No | RS: No | Type: DISCN